FAERS Safety Report 9775883 (Version 1)
Quarter: 2013Q4

REPORT INFORMATION
  Report Type: Spontaneous
  Country: FR (occurrence: FR)
  Receive Date: 20131220
  Receipt Date: 20131220
  Transmission Date: 20140711
  Serious: Yes (Other)
  Sender: FDA-Public Use
  Company Number: FR-GLAXOSMITHKLINE-B0953550A

PATIENT
  Age: 70 Year
  Sex: Female

DRUGS (12)
  1. ZELITREX [Suspect]
     Indication: PRODUCT USED FOR UNKNOWN INDICATION
     Dosage: 500MG TWICE PER DAY
     Route: 048
     Dates: start: 20131115, end: 20131119
  2. BACTRIM [Suspect]
     Indication: PNEUMOCYSTIS JIROVECII PNEUMONIA
     Dosage: 3INJ PER DAY
     Route: 042
     Dates: start: 20131030, end: 20131119
  3. ZOPHREN [Concomitant]
  4. XYLOCAINE [Concomitant]
  5. ZOLPIDEM [Concomitant]
  6. BISOPROLOL [Concomitant]
  7. CORTANCYL [Concomitant]
  8. SANDIMMUN [Concomitant]
  9. FUNGIZONE [Concomitant]
  10. APROVEL [Concomitant]
  11. EUPANTOL [Concomitant]
  12. SOLUPRED [Concomitant]

REACTIONS (1)
  - Pancytopenia [Recovering/Resolving]
